FAERS Safety Report 5407391-3 (Version None)
Quarter: 2007Q3

REPORT INFORMATION
  Report Type: 
  Country: None (occurrence: None)
  Receive Date: 20070807
  Receipt Date: 20070726
  Transmission Date: 20080115
  Serious: Yes (Hospitalization)
  Sender: FDA-Public Use
  Company Number: FR-GENENTECH-245028

PATIENT
  Sex: Female
  Weight: 37 kg

DRUGS (7)
  1. BEVACIZUMAB [Suspect]
     Indication: BREAST CANCER METASTATIC
     Dosage: 15 MG/M2, Q3W
     Route: 042
     Dates: start: 20070301
  2. XELODA [Suspect]
     Indication: BREAST CANCER METASTATIC
     Dosage: 1500 MG, BID
     Route: 048
     Dates: start: 20070412
  3. TAXOL [Suspect]
     Indication: BREAST CANCER METASTATIC
     Dosage: 210 MG, Q3W
     Route: 042
     Dates: start: 20070301
  4. GRANOCYTE 34 [Concomitant]
     Indication: DRUG USE FOR UNKNOWN INDICATION
     Dates: start: 20070622, end: 20070624
  5. PROZAC [Concomitant]
     Indication: DRUG USE FOR UNKNOWN INDICATION
  6. XANAX [Concomitant]
     Indication: DRUG USE FOR UNKNOWN INDICATION
     Dates: start: 20070619, end: 20070621
  7. TRIFLUCAN [Concomitant]
     Indication: DRUG USE FOR UNKNOWN INDICATION
     Dates: start: 20070705

REACTIONS (1)
  - GENERAL PHYSICAL HEALTH DETERIORATION [None]
